FAERS Safety Report 4692940-3 (Version None)
Quarter: 2005Q2

REPORT INFORMATION
  Report Type: 
  Country: None (occurrence: None)
  Receive Date: 20050615
  Receipt Date: 20050609
  Transmission Date: 20051028
  Serious: Yes (Other)
  Sender: FDA-Public Use
  Company Number: 2005-05-1950

PATIENT
  Age: 74 Year
  Sex: Male
  Weight: 81.6475 kg

DRUGS (5)
  1. NASONEX [Suspect]
     Indication: UPPER RESPIRATORY TRACT INFECTION
     Dosage: NASAL SPRAY
     Dates: start: 20050525, end: 20050525
  2. LIPITOR [Concomitant]
  3. SYNTHROID [Concomitant]
  4. CARDIZEM [Concomitant]
  5. NEXIUM [Concomitant]

REACTIONS (2)
  - AGEUSIA [None]
  - ANOSMIA [None]
